FAERS Safety Report 6034907-9 (Version None)
Quarter: 2009Q1

REPORT INFORMATION
  Report Type: 
  Country: None (occurrence: None)
  Receive Date: 20090112
  Receipt Date: 20081006
  Transmission Date: 20090719
  Serious: No
  Sender: FDA-Public Use
  Company Number: US-BAYER-200813993BCC

PATIENT
  Age: 14 Year
  Sex: Female
  Weight: 57 kg

DRUGS (3)
  1. MIDOL [Suspect]
     Indication: DYSMENORRHOEA
     Dosage: TOTAL DAILY DOSE: 2 DF  UNIT DOSE: 1 DF
     Dates: start: 20081003
  2. MIDOL [Suspect]
     Indication: DYSMENORRHOEA
     Dosage: AS USED: 2 DF  UNIT DOSE: 1 DF
     Dates: start: 20081003
  3. BIRTH CONTROL PILLS [Concomitant]

REACTIONS (2)
  - FATIGUE [None]
  - FEELING JITTERY [None]
